FAERS Safety Report 6640982-0 (Version None)
Quarter: 2010Q1

REPORT INFORMATION
  Report Type: 
  Country: None (occurrence: None)
  Receive Date: 20100318
  Receipt Date: 20100312
  Transmission Date: 20100710
  Serious: Yes (Other)
  Sender: FDA-Public Use
  Company Number: A0849987A

PATIENT
  Sex: Female

DRUGS (3)
  1. WELLBUTRIN [Suspect]
     Indication: DEPRESSION
     Dosage: 100MG UNKNOWN
     Route: 048
     Dates: start: 20100101, end: 20100101
  2. ZOLOFT [Concomitant]
  3. TRILEPTAL [Concomitant]

REACTIONS (3)
  - ANAEMIA [None]
  - MENORRHAGIA [None]
  - MENSTRUATION IRREGULAR [None]
